FAERS Safety Report 19865515 (Version 2)
Quarter: 2021Q3

REPORT INFORMATION
  Report Type: Spontaneous
  Country: US (occurrence: US)
  Receive Date: 20210922
  Receipt Date: 20210928
  Transmission Date: 20211014
  Serious: Yes (Hospitalization, Other)
  Sender: FDA-Public Use
  Company Number: US-BAUSCH-BL-2021-032499

PATIENT
  Age: 15 Year
  Sex: Female

DRUGS (2)
  1. BUPROPION. [Suspect]
     Active Substance: BUPROPION
     Indication: PRODUCT USED FOR UNKNOWN INDICATION
     Route: 048
  2. SERTRALINE [Interacting]
     Active Substance: SERTRALINE HYDROCHLORIDE
     Indication: PRODUCT USED FOR UNKNOWN INDICATION
     Route: 048

REACTIONS (8)
  - Overdose [Unknown]
  - Metabolic encephalopathy [Recovering/Resolving]
  - Generalised tonic-clonic seizure [Recovering/Resolving]
  - Drug interaction [Unknown]
  - Encephalopathy [Recovering/Resolving]
  - Hypometabolism [Unknown]
  - Anterograde amnesia [Unknown]
  - Myoclonus [Recovering/Resolving]
